FAERS Safety Report 9542833 (Version 2)
Quarter: 2013Q4

REPORT INFORMATION
  Report Type: Report from Study
  Country: US (occurrence: US)
  Receive Date: 20130923
  Receipt Date: 20131028
  Transmission Date: 20140711
  Serious: Yes (Hospitalization)
  Sender: FDA-Public Use
  Company Number: US-SANOFI-AVENTIS-2013SA092727

PATIENT
  Age: 50 Year
  Sex: Female
  Weight: 147.41 kg

DRUGS (7)
  1. AUBAGIO [Suspect]
     Indication: MULTIPLE SCLEROSIS
     Route: 065
     Dates: start: 20121201
  2. GLIPIZIDE [Concomitant]
     Indication: DIABETES MELLITUS
     Dates: start: 2000
  3. METFORMIN [Concomitant]
     Indication: DIABETES MELLITUS
     Dates: start: 2012
  4. LISINOPRIL [Concomitant]
     Indication: BLOOD PRESSURE
     Dates: start: 2005
  5. HYDROCHLOROTHIAZIDE [Concomitant]
     Indication: BLOOD PRESSURE
     Dates: start: 2008
  6. POLY-IRON [Concomitant]
     Indication: ANAEMIA
     Dates: start: 2004
  7. ASPIRIN [Concomitant]
     Indication: MYOCARDIAL INFARCTION
     Dates: start: 2011

REACTIONS (4)
  - Chest pain [Unknown]
  - Stress [Unknown]
  - Diarrhoea [Recovered/Resolved]
  - Nausea [Recovered/Resolved]
